FAERS Safety Report 9608449 (Version 1)
Quarter: 2013Q4

REPORT INFORMATION
  Report Type: Spontaneous
  Country: US (occurrence: US)
  Receive Date: 20131009
  Receipt Date: 20131009
  Transmission Date: 20140711
  Serious: No
  Sender: FDA-Public Use
  Company Number: US-009507513-1309USA013333

PATIENT
  Age: 50 Year
  Sex: Female

DRUGS (4)
  1. ISENTRESS [Suspect]
     Indication: HIV INFECTION
     Dosage: 400 MG/ TWICE DAILY
     Route: 048
     Dates: start: 20120923
  2. ATRIPLA [Suspect]
     Dosage: UNKNOWN
     Route: 048
  3. SYNTHROID [Suspect]
     Dosage: UNKNOWN
  4. LIPITOR [Suspect]
     Dosage: UNK

REACTIONS (2)
  - Swollen tongue [Not Recovered/Not Resolved]
  - Dizziness [Not Recovered/Not Resolved]
